FAERS Safety Report 10466313 (Version 2)
Quarter: 2014Q4

REPORT INFORMATION
  Report Type: Spontaneous
  Country: US (occurrence: None)
  Receive Date: 20140918
  Receipt Date: 20141002
  Transmission Date: 20150528
  Serious: Yes (Hospitalization, Other)
  Sender: FDA-Public Use
  Company Number: 2014-US-011499

PATIENT
  Age: 47 Year
  Sex: Female

DRUGS (2)
  1. XYREM [Suspect]
     Active Substance: SODIUM OXYBATE
     Indication: CATAPLEXY
     Route: 048
     Dates: start: 201212, end: 2012
  2. XYREM [Suspect]
     Active Substance: SODIUM OXYBATE
     Indication: NARCOLEPSY
     Route: 048
     Dates: start: 201212, end: 2012

REACTIONS (8)
  - Cyanosis [None]
  - Depressed level of consciousness [None]
  - Pallor [None]
  - Hypopnoea [None]
  - Myocardial necrosis marker increased [None]
  - Chronic obstructive pulmonary disease [None]
  - Unresponsive to stimuli [None]
  - Drug dose omission [None]

NARRATIVE: CASE EVENT DATE: 201408
